FAERS Safety Report 7445151-2 (Version None)
Quarter: 2011Q2

REPORT INFORMATION
  Report Type: 
  Country: None (occurrence: None)
  Receive Date: 20110429
  Receipt Date: 20110425
  Transmission Date: 20111010
  Serious: Yes (Hospitalization)
  Sender: FDA-Public Use
  Company Number: US-ABBOTT-11P-163-0721933-00

PATIENT
  Sex: Female
  Weight: 118.04 kg

DRUGS (10)
  1. HUMIRA [Suspect]
     Indication: RHEUMATOID ARTHRITIS
     Dates: start: 20070101
  2. CLONOPIN [Concomitant]
     Indication: ANXIETY
  3. HUMIRA [Suspect]
  4. HYDROCHLOROTHIAZIDE [Concomitant]
     Indication: HYPERTENSION
  5. ZYRTEC [Concomitant]
     Indication: SEASONAL ALLERGY
  6. IBUPROFEN [Concomitant]
     Indication: PAIN
  7. SIMVASTATIN [Concomitant]
     Indication: BLOOD CHOLESTEROL INCREASED
  8. HUMIRA [Suspect]
  9. LEXAPRO [Concomitant]
     Indication: DEPRESSION
  10. SINGULAIR [Concomitant]
     Indication: ASTHMA

REACTIONS (4)
  - PAIN IN EXTREMITY [None]
  - KNEE ARTHROPLASTY [None]
  - MEMORY IMPAIRMENT [None]
  - DRUG DOSE OMISSION [None]
